FAERS Safety Report 23504078 (Version 1)
Quarter: 2024Q1

REPORT INFORMATION
  Report Type: Spontaneous
  Country: FR (occurrence: FR)
  Receive Date: 20240209
  Receipt Date: 20240209
  Transmission Date: 20240410
  Serious: Yes (Death)
  Sender: FDA-Public Use
  Company Number: None

PATIENT
  Age: 38 Year
  Sex: Male
  Weight: 72 kg

DRUGS (4)
  1. DIAZEPAM [Suspect]
     Active Substance: DIAZEPAM
     Indication: Anxiety
     Dosage: 40 MG
     Route: 048
     Dates: start: 20230425
  2. LOXAPINE [Interacting]
     Active Substance: LOXAPINE
     Indication: Psychotic disorder
     Dosage: 25 MG 2 TIMES A DAY
     Route: 048
     Dates: start: 20230506
  3. CYAMEMAZINE [Interacting]
     Active Substance: CYAMEMAZINE
     Indication: Anxiety
     Dosage: 25 MG 2 TIMES A DAY/CYAMEMAZINE VIATRIS 25 MG, SCORED FILM-COATED TABLET
     Route: 048
     Dates: start: 20230429
  4. METHADONE HYDROCHLORIDE [Interacting]
     Active Substance: METHADONE HYDROCHLORIDE
     Indication: Toxicity to various agents
     Dosage: 40 MG
     Route: 048

REACTIONS (1)
  - Choking [Fatal]

NARRATIVE: CASE EVENT DATE: 20230508
